FAERS Safety Report 7767688-9 (Version None)
Quarter: 2011Q3

REPORT INFORMATION
  Report Type: 
  Country: None (occurrence: None)
  Receive Date: 20110922
  Receipt Date: 20110916
  Transmission Date: 20111222
  Serious: Yes (Other)
  Sender: FDA-Public Use
  Company Number: GB-PFIZER INC-2011222661

PATIENT
  Age: 86 Year
  Sex: Male
  Weight: 92.98 kg

DRUGS (10)
  1. DIPYRIDAMOLE [Concomitant]
  2. FUROSEMIDE [Concomitant]
  3. MOVIPREP [Concomitant]
  4. TOLTERODINE TARTRATE [Suspect]
  5. CALCIUM CARBONATE [Concomitant]
  6. PARACETAMOL [Concomitant]
  7. ACETYLSALICYLIC ACID [Concomitant]
  8. RAMIPRIL [Concomitant]
  9. SIMVASTATIN [Concomitant]
  10. FINASTERIDE [Concomitant]

REACTIONS (2)
  - DRUG HYPERSENSITIVITY [None]
  - HYPERSENSITIVITY [None]
